FAERS Safety Report 24686569 (Version 2)
Quarter: 2024Q4

REPORT INFORMATION
  Report Type: Report from Study
  Country: US (occurrence: US)
  Receive Date: 20241202
  Receipt Date: 20241223
  Transmission Date: 20250115
  Serious: Yes (Other)
  Sender: OTSUKA
  Company Number: US-OTSUKA-2024_031917

PATIENT
  Age: 83 Year
  Sex: Male

DRUGS (3)
  1. BREXPIPRAZOLE [Suspect]
     Active Substance: BREXPIPRAZOLE
     Indication: Product used for unknown indication
     Dosage: 2 MG
     Route: 065
  2. BREXPIPRAZOLE [Suspect]
     Active Substance: BREXPIPRAZOLE
     Dosage: 0.5 DF (CUTTING THE TABLET IN HALF AND GAVE 1MG)
     Route: 065
  3. BREXPIPRAZOLE [Suspect]
     Active Substance: BREXPIPRAZOLE
     Dosage: 2 MG
     Route: 065

REACTIONS (3)
  - Hallucination [Unknown]
  - Disorientation [Unknown]
  - Incontinence [Unknown]

NARRATIVE: CASE EVENT DATE: 20241101
